FAERS Safety Report 19983912 (Version 1)
Quarter: 2021Q4

REPORT INFORMATION
  Report Type: Spontaneous
  Country: US (occurrence: US)
  Receive Date: 20211022
  Receipt Date: 20211022
  Transmission Date: 20220303
  Serious: Yes (Hospitalization, Other)
  Sender: FDA-Public Use
  Company Number: US-ASTELLAS-2021US016791

PATIENT
  Age: 57 Year
  Sex: Male

DRUGS (57)
  1. TACROLIMUS [Suspect]
     Active Substance: TACROLIMUS
     Indication: Graft versus host disease in liver
     Dosage: UNK
     Route: 065
  2. TACROLIMUS [Suspect]
     Active Substance: TACROLIMUS
     Indication: Graft versus host disease in skin
  3. TACROLIMUS [Suspect]
     Active Substance: TACROLIMUS
     Indication: Graft versus host disease in eye
  4. CARFILZOMIB [Suspect]
     Active Substance: CARFILZOMIB
     Indication: Plasma cell myeloma
     Dosage: UNK, BENDAMUSTINE, CARFILZOMIB, AND DEXAMETHASONE
     Route: 065
  5. CARFILZOMIB [Suspect]
     Active Substance: CARFILZOMIB
     Dosage: 27 MILLIGRAM PER SQUARE METRE, CYCLICAL
     Route: 065
  6. CARFILZOMIB [Suspect]
     Active Substance: CARFILZOMIB
     Dosage: UNK, CARFILZOMIB, POMALIDOMIDE, DARATUMUMAB, AND DEXAMETHASONE
     Route: 065
  7. CARFILZOMIB [Suspect]
     Active Substance: CARFILZOMIB
     Dosage: 56 MILLIGRAM PER SQUARE METRE, CYCLICAL, WEEKLY, 28 DAY CYCLE
     Route: 065
  8. CARFILZOMIB [Suspect]
     Active Substance: CARFILZOMIB
     Dosage: UNK, SELINEXOR, CARFILZOMIB, AND DEXAMETHASONE
     Route: 065
  9. CARFILZOMIB [Suspect]
     Active Substance: CARFILZOMIB
     Dosage: UNK, CARFILZOMIB, PACE, AND VENETOCLAX
     Route: 065
  10. CARFILZOMIB [Suspect]
     Active Substance: CARFILZOMIB
     Dosage: UNK, CARFILZOMIB, DCEP
     Route: 065
  11. CARFILZOMIB [Suspect]
     Active Substance: CARFILZOMIB
     Dosage: UNK, CARFILZOMIB, DCEP
     Route: 065
  12. CARFILZOMIB [Suspect]
     Active Substance: CARFILZOMIB
     Dosage: UNK, , BENDAMUSTINE, CARFILZOMIB, AND DEXAMETHASONE
     Route: 065
  13. CARFILZOMIB [Suspect]
     Active Substance: CARFILZOMIB
     Dosage: UNK, CARFILZOMIB, POMALIDOMIDE, DARATUMUMAB, AND DEXAMETHASONE
     Route: 065
  14. CARFILZOMIB [Suspect]
     Active Substance: CARFILZOMIB
     Dosage: UNK, SELINEXOR, CARFILZOMIB, AND DEXAMETHASONE
     Route: 065
  15. CARFILZOMIB [Suspect]
     Active Substance: CARFILZOMIB
     Dosage: UNK, CARFILZOMIB, PACE, AND VENETOCLAX
     Route: 065
  16. VENETOCLAX [Suspect]
     Active Substance: VENETOCLAX
     Indication: Plasma cell myeloma
     Dosage: UNK, CARFILZOMIB, PACE, AND VENETOCLAX
     Route: 065
  17. VENETOCLAX [Suspect]
     Active Substance: VENETOCLAX
     Dosage: UNK, VENETOCLAX AND AZACYTIDINE
     Route: 065
  18. BENDAMUSTINE [Suspect]
     Active Substance: BENDAMUSTINE
     Indication: Plasma cell myeloma
     Dosage: UNK, BENDAMUSTINE, CARFILZOMIB, AND DEXAMETHASONE
     Route: 065
  19. POMALIDOMIDE [Suspect]
     Active Substance: POMALIDOMIDE
     Indication: Plasma cell myeloma
     Dosage: UNK, CARFILZOMIB, POMALIDOMIDE, DARATUMUMAB, AND DEXAMETHASONE
     Route: 065
  20. POMALIDOMIDE [Suspect]
     Active Substance: POMALIDOMIDE
     Dosage: UNK, DARATUMUMAB, POMALIDOMIDE, AND DEXAMETHASONE
     Route: 065
  21. DARATUMUMAB [Suspect]
     Active Substance: DARATUMUMAB
     Indication: Plasma cell myeloma
     Dosage: UNK, DARATUMUMAB, POMALIDOMIDE, AND DEXAMETHASONE
     Route: 065
  22. DARATUMUMAB [Suspect]
     Active Substance: DARATUMUMAB
     Dosage: UNK, CARFILZOMIB, POMALIDOMIDE, DARATUMUMAB, AND DEXAMETHASONE
     Route: 065
  23. CYTARABINE [Suspect]
     Active Substance: CYTARABINE
     Indication: Bone marrow conditioning regimen
     Dosage: UNK, BEAM
     Route: 065
  24. BORTEZOMIB [Suspect]
     Active Substance: BORTEZOMIB
     Indication: Plasma cell myeloma
     Dosage: UNK, LIPOSOMAL DOXORUBICIN, DCEP (MINUS CISPLATIN), AND BORTEZOMIB
     Route: 065
  25. BORTEZOMIB [Suspect]
     Active Substance: BORTEZOMIB
     Dosage: 1.3 MILLIGRAM PER SQUARE METRE, 2 WEEKS
     Route: 058
  26. BORTEZOMIB [Suspect]
     Active Substance: BORTEZOMIB
     Dosage: UNK, 1 WEEK, CYCLOPHOSPHAMIDE, BORTEZOMIB, AND DEXAMETHASONE
     Route: 065
  27. CISPLATIN [Suspect]
     Active Substance: CISPLATIN
     Indication: Plasma cell myeloma
     Dosage: UNK, CYCLICAL, DCEP
     Route: 065
  28. CISPLATIN [Suspect]
     Active Substance: CISPLATIN
     Dosage: UNK, PACE
     Route: 065
  29. AZACITIDINE [Suspect]
     Active Substance: AZACITIDINE
     Indication: Plasma cell myeloma
     Dosage: UNK
     Route: 065
  30. ELOTUZUMAB [Suspect]
     Active Substance: ELOTUZUMAB
     Indication: Plasma cell myeloma
     Dosage: UNK, ELOTUZUMAB, LENALIDOMIDE, AND DEXAMETHASONE
     Route: 065
  31. CYCLOPHOSPHAMIDE [Suspect]
     Active Substance: CYCLOPHOSPHAMIDE
     Indication: Plasma cell myeloma
     Dosage: UNK, DCEP (MINUS CISPLATIN)
     Route: 065
  32. CYCLOPHOSPHAMIDE [Suspect]
     Active Substance: CYCLOPHOSPHAMIDE
     Dosage: UNK, 1 WEEK, CYCLOPHOSPHAMIDE, BORTEZOMIB, AND DEXAMETHASONE
     Route: 065
  33. CYCLOPHOSPHAMIDE [Suspect]
     Active Substance: CYCLOPHOSPHAMIDE
     Dosage: UNK, 2, CYCLICAL, DCEP
     Route: 065
  34. CYCLOPHOSPHAMIDE [Suspect]
     Active Substance: CYCLOPHOSPHAMIDE
     Dosage: UNK, PACE
     Route: 065
  35. DOXORUBICIN [Suspect]
     Active Substance: DOXORUBICIN
     Indication: Plasma cell myeloma
     Dosage: UNK, PACE
     Route: 065
  36. CARMUSTINE [Suspect]
     Active Substance: CARMUSTINE
     Indication: Bone marrow conditioning regimen
     Dosage: UNK, BEAM
     Route: 065
  37. DEXAMETHASONE [Suspect]
     Active Substance: DEXAMETHASONE
     Indication: Plasma cell myeloma
     Dosage: UNK, 2, CYCLICAL, DCEP
     Route: 065
  38. DEXAMETHASONE [Suspect]
     Active Substance: DEXAMETHASONE
     Dosage: UNK, BENDAMUSTINE, CARFILZOMIB, AND DEXAMETHASONE
     Route: 065
  39. DEXAMETHASONE [Suspect]
     Active Substance: DEXAMETHASONE
     Dosage: 40 MILLIGRAM, CYCLICAL, ONCE WEEKLY IN 28 DAY CYCLE
     Route: 065
  40. DEXAMETHASONE [Suspect]
     Active Substance: DEXAMETHASONE
     Dosage: UNK, ELOTUZUMAB, LENALIDOMIDE, AND DEXAMETHASONE
     Route: 065
  41. DEXAMETHASONE [Suspect]
     Active Substance: DEXAMETHASONE
     Dosage: UNK, SELINEXOR, CARFILZOMIB, AND DEXAMETHASONE
     Route: 065
  42. DEXAMETHASONE [Suspect]
     Active Substance: DEXAMETHASONE
     Dosage: 40 MILLIGRAM, LENALIDOMIDE 25 MG, DEXAMETHASONE 40 MG
     Route: 065
  43. DEXAMETHASONE [Suspect]
     Active Substance: DEXAMETHASONE
     Dosage: UNK, CARFILZOMIB, POMALIDOMIDE, DARATUMUMAB, AND DEXAMETHASONE
     Route: 065
  44. DEXAMETHASONE [Suspect]
     Active Substance: DEXAMETHASONE
     Dosage: UNK, QW, CYCLOPHOSPHAMIDE, BORTEZOMIB, AND DEXAMETHASONE
     Route: 065
  45. DEXAMETHASONE [Suspect]
     Active Substance: DEXAMETHASONE
     Dosage: UNK, DCEP (MINUS CISPLATIN)
     Route: 065
  46. DEXAMETHASONE [Suspect]
     Active Substance: DEXAMETHASONE
     Dosage: UNK, DARATUMUMAB, POMALIDOMIDE, AND DEXAMETHASONE
     Route: 065
  47. FLUDARABINE [Suspect]
     Active Substance: FLUDARABINE PHOSPHATE
     Indication: Bone marrow conditioning regimen
     Dosage: UNK, BEAM
     Route: 065
  48. ETOPOSIDE [Suspect]
     Active Substance: ETOPOSIDE
     Indication: Bone marrow conditioning regimen
     Dosage: UNK, DCEP (MINUS CISPLATIN)
     Route: 065
  49. ETOPOSIDE [Suspect]
     Active Substance: ETOPOSIDE
     Indication: Plasma cell myeloma
     Dosage: UNK, 2, CYCLICAL, DCEP
     Route: 065
  50. ETOPOSIDE [Suspect]
     Active Substance: ETOPOSIDE
     Dosage: UNK, PACE
     Route: 065
  51. MELPHALAN [Suspect]
     Active Substance: MELPHALAN
     Indication: Bone marrow conditioning regimen
     Dosage: 200 MILLIGRAM PER SQUARE METRE
     Route: 065
  52. MELPHALAN [Suspect]
     Active Substance: MELPHALAN
     Dosage: 200 MILLIGRAM PER SQUARE METRE, BEAM
     Route: 065
  53. SELINEXOR [Suspect]
     Active Substance: SELINEXOR
     Indication: Plasma cell myeloma
     Dosage: 80 MILLIGRAM, 3, CYCLICAL, TWICE WEEKLY
     Route: 065
  54. SELINEXOR [Suspect]
     Active Substance: SELINEXOR
     Dosage: 100 MILLIGRAM, QW
     Route: 065
  55. LENALIDOMIDE [Suspect]
     Active Substance: LENALIDOMIDE
     Indication: Plasma cell myeloma
     Dosage: 25 MILLIGRAM
     Route: 065
  56. LENALIDOMIDE [Suspect]
     Active Substance: LENALIDOMIDE
     Dosage: UNK, ELOTUZUMAB, LENALIDOMIDE, AND DEXAMETHASONE
     Route: 065
  57. SODIUM IODIDE I-131 [Concomitant]
     Active Substance: SODIUM IODIDE I-131
     Indication: Product used for unknown indication
     Dosage: UNK
     Route: 065

REACTIONS (7)
  - Pneumonia mycoplasmal [Recovered/Resolved]
  - Bacteraemia [Unknown]
  - Ototoxicity [Unknown]
  - Pneumonia respiratory syncytial viral [Recovered/Resolved]
  - Pneumonia [Unknown]
  - Neuropathy peripheral [Unknown]
  - Clostridium difficile colitis [Unknown]
